FAERS Safety Report 7866904-2 (Version None)
Quarter: 2011Q4

REPORT INFORMATION
  Report Type: 
  Country: None (occurrence: None)
  Receive Date: 20111028
  Receipt Date: 20111020
  Transmission Date: 20120403
  Serious: Yes (Other)
  Sender: FDA-Public Use
  Company Number: US-ABBOTT-11P-163-0867293-00

PATIENT
  Sex: Female
  Weight: 72.64 kg

DRUGS (8)
  1. HUMIRA [Suspect]
     Indication: JUVENILE ARTHRITIS
     Route: 050
     Dates: start: 20100915, end: 20101028
  2. MAGNESIUM [Concomitant]
     Indication: ABNORMAL LABOUR
     Route: 050
     Dates: start: 20110415, end: 20110415
  3. TYLENOL-500 [Concomitant]
     Indication: HEADACHE
     Route: 048
     Dates: start: 20101123, end: 20101123
  4. HUMIRA [Suspect]
     Indication: UVEITIS
  5. FLU VACCINE [Concomitant]
     Indication: ANTIVIRAL PROPHYLAXIS
     Route: 050
     Dates: start: 20101115, end: 20101215
  6. PREDNISONE [Concomitant]
     Indication: JUVENILE ARTHRITIS
     Route: 048
     Dates: start: 20101101, end: 20110418
  7. PREDNISONE [Concomitant]
     Indication: UVEITIS
  8. MULTI-VITAMINS [Concomitant]
     Indication: PRODUCT USED FOR UNKNOWN INDICATION
     Route: 048
     Dates: start: 20101028, end: 20110418

REACTIONS (3)
  - PREMATURE LABOUR [None]
  - PREMATURE DELIVERY [None]
  - POLYHYDRAMNIOS [None]
